FAERS Safety Report 5984253-4 (Version None)
Quarter: 2008Q4

REPORT INFORMATION
  Report Type: 
  Country: None (occurrence: None)
  Receive Date: 20081205
  Receipt Date: 20081205
  Transmission Date: 20090506
  Serious: No
  Sender: FDA-Public Use
  Company Number: None

PATIENT
  Age: 55 Year
  Sex: Male
  Weight: 108.8633 kg

DRUGS (1)
  1. LIPITOR [Suspect]
     Indication: BLOOD CHOLESTEROL INCREASED
     Dosage: SHOULD BE 10MG ONCE A DAY PILL

REACTIONS (3)
  - ACCIDENTAL OVERDOSE [None]
  - DRUG DISPENSING ERROR [None]
  - MEDICATION ERROR [None]
